FAERS Safety Report 6311555-4 (Version None)
Quarter: 2009Q3

REPORT INFORMATION
  Report Type: 
  Country: None (occurrence: None)
  Receive Date: 20090817
  Receipt Date: 20090806
  Transmission Date: 20100115
  Serious: Yes (Other)
  Sender: FDA-Public Use
  Company Number: JP-PFIZER INC-2009252201

PATIENT
  Age: 82 Year

DRUGS (5)
  1. SUNITINIB MALATE [Suspect]
     Indication: RENAL CELL CARCINOMA
     Dosage: 37.5 MG, DAILY, TDD 37.5 MG
     Route: 048
     Dates: start: 20090619
  2. AMLODIPINE [Concomitant]
     Dosage: UNK
     Route: 048
  3. ITOROL [Concomitant]
     Dosage: UNK
     Route: 048
  4. TENORMIN [Concomitant]
     Dosage: UNK
     Route: 048
  5. DICLOFENAC SODIUM [Concomitant]
     Dosage: UNK
     Route: 051
     Dates: start: 20090702, end: 20090704

REACTIONS (1)
  - HEPATIC FUNCTION ABNORMAL [None]
